FAERS Safety Report 7361954-7 (Version None)
Quarter: 2011Q1

REPORT INFORMATION
  Report Type: 
  Country: None (occurrence: None)
  Receive Date: 20110318
  Receipt Date: 20110314
  Transmission Date: 20110831
  Serious: Yes (Death, Other)
  Sender: FDA-Public Use
  Company Number: PHHY2011GB20214

PATIENT
  Age: 46 Year
  Sex: Female
  Weight: 74 kg

DRUGS (2)
  1. PROPRANOLOL [Suspect]
     Indication: ANXIETY
     Dosage: 40 MG, TID
     Route: 048
     Dates: start: 20110124
  2. RAMIPRIL [Concomitant]
     Indication: HYPERTENSION
     Dosage: 5 MG, QD
     Route: 048
     Dates: start: 20100104

REACTIONS (2)
  - CHEST PAIN [None]
  - DEATH [None]
